FAERS Safety Report 20362788 (Version 1)
Quarter: 2022Q1

REPORT INFORMATION
  Report Type: Spontaneous
  Country: SA (occurrence: SA)
  Receive Date: 20220121
  Receipt Date: 20220121
  Transmission Date: 20220423
  Serious: Yes (Death, Other)
  Sender: FDA-Public Use
  Company Number: SA-PFIZER INC-202200063497

PATIENT
  Age: 5 Week
  Sex: Male

DRUGS (11)
  1. MEROPENEM [Suspect]
     Active Substance: MEROPENEM
     Indication: Pneumonia klebsiella
     Dosage: UNK
     Dates: start: 20130620, end: 20130712
  2. MEROPENEM [Suspect]
     Active Substance: MEROPENEM
     Dosage: UNK
     Dates: start: 20130716, end: 20130806
  3. MEROPENEM [Suspect]
     Active Substance: MEROPENEM
     Dosage: UNK
     Dates: start: 20130815
  4. VANCOMYCIN [Suspect]
     Active Substance: VANCOMYCIN
     Indication: Pneumonia klebsiella
     Dosage: UNK
     Dates: start: 20130725, end: 20130806
  5. VANCOMYCIN [Suspect]
     Active Substance: VANCOMYCIN
     Dosage: UNK
     Dates: start: 20130815
  6. AMIKACIN [Suspect]
     Active Substance: AMIKACIN
     Indication: Pneumonia klebsiella
     Dosage: UNK
     Dates: start: 20130620, end: 20130712
  7. AMIKACIN [Suspect]
     Active Substance: AMIKACIN
     Dosage: UNK
     Dates: start: 20130716, end: 20130725
  8. AMIKACIN [Suspect]
     Active Substance: AMIKACIN
     Dosage: UNK
     Dates: start: 20130815
  9. COLISTIN [Suspect]
     Active Substance: COLISTIN
     Indication: Pneumonia klebsiella
     Dosage: UNK
     Dates: start: 20130620, end: 20130712
  10. COLISTIN [Suspect]
     Active Substance: COLISTIN
     Dosage: UNK
     Dates: start: 20130716, end: 20130806
  11. COLISTIN [Suspect]
     Active Substance: COLISTIN
     Dosage: UNK
     Dates: start: 20130817

REACTIONS (2)
  - Drug ineffective [Fatal]
  - Septic shock [Fatal]

NARRATIVE: CASE EVENT DATE: 20130819
